FAERS Safety Report 4434269-4 (Version None)
Quarter: 2004Q3

REPORT INFORMATION
  Report Type: 
  Country: None (occurrence: None)
  Receive Date: 20040825
  Receipt Date: 20040812
  Transmission Date: 20050211
  Serious: Yes (Hospitalization)
  Sender: FDA-Public Use
  Company Number: STA-AE-04-MTX-364

PATIENT
  Age: 49 Year
  Sex: Female

DRUGS (3)
  1. METHOTREXATE [Suspect]
     Indication: RHEUMATOID ARTHRITIS
     Dosage: ONCE WEELY, ORAL
     Route: 048
     Dates: start: 20010302, end: 20010629
  2. PLACEBO FOR ETANCERPT (INJECTION) [Suspect]
     Indication: RHEUMATOID ARTHRITIS
     Dosage: TWICE WEEKLY, INJECTION
     Dates: start: 20010302, end: 20010629
  3. CLASTEON (CLODRONATE DISODIUM) [Concomitant]

REACTIONS (5)
  - CONDITION AGGRAVATED [None]
  - DRUG INEFFECTIVE [None]
  - INTERMITTENT CLAUDICATION [None]
  - RHEUMATOID ARTHRITIS [None]
  - THERAPY NON-RESPONDER [None]
